FAERS Safety Report 13545678 (Version 10)
Quarter: 2024Q4

REPORT INFORMATION
  Report Type: Spontaneous
  Country: US (occurrence: US)
  Receive Date: 20170515
  Receipt Date: 20241212
  Transmission Date: 20250114
  Serious: Yes (Other)
  Sender: PFIZER
  Company Number: US-PFIZER INC-2017213028

PATIENT
  Age: 74 Year
  Sex: Female
  Weight: 72.12 kg

DRUGS (6)
  1. XELJANZ [Suspect]
     Active Substance: TOFACITINIB CITRATE
     Indication: Rheumatoid arthritis
     Dosage: 5 MG, 2X/DAY
  2. XELJANZ [Suspect]
     Active Substance: TOFACITINIB CITRATE
     Dosage: 5 MG, 1X/DAY
  3. XELJANZ [Suspect]
     Active Substance: TOFACITINIB CITRATE
     Dosage: 5 MG, 2X/DAY
  4. XELJANZ [Suspect]
     Active Substance: TOFACITINIB CITRATE
     Dosage: UNK, 1X/DAY
     Dates: start: 202307
  5. XELJANZ [Suspect]
     Active Substance: TOFACITINIB CITRATE
     Dosage: I AM TAKING 1 TABLET EVERY OTHER DAY NO I AM TAKING 2 TABLETS TWICE A DAY I AM NOT SURE
  6. XELJANZ [Suspect]
     Active Substance: TOFACITINIB CITRATE
     Dosage: 5 MG, 1X/DAY

REACTIONS (7)
  - Chronic kidney disease [Not Recovered/Not Resolved]
  - Extra dose administered [Unknown]
  - Product administration error [Unknown]
  - Off label use [Recovering/Resolving]
  - Infection [Unknown]
  - Rotator cuff syndrome [Unknown]
  - Arthralgia [Unknown]

NARRATIVE: CASE EVENT DATE: 20211201
